FAERS Safety Report 4793707-8 (Version None)
Quarter: 2005Q4

REPORT INFORMATION
  Report Type: 
  Country: None (occurrence: None)
  Receive Date: 20051011
  Receipt Date: 20051003
  Transmission Date: 20060501
  Serious: Yes (Hospitalization)
  Sender: FDA-Public Use
  Company Number: US-JNJFOC-20051001128

PATIENT
  Sex: Female

DRUGS (1)
  1. DURAGESIC-100 [Suspect]
     Route: 062
     Dates: start: 20020101

REACTIONS (3)
  - ABASIA [None]
  - BACK DISORDER [None]
  - PHARMACEUTICAL PRODUCT COMPLAINT [None]
